FAERS Safety Report 12895996 (Version 1)
Quarter: 2016Q4

REPORT INFORMATION
  Report Type: Spontaneous
  Country: US (occurrence: US)
  Receive Date: 20161031
  Receipt Date: 20161031
  Transmission Date: 20170207
  Serious: Yes (Other)
  Sender: FDA-Public Use
  Company Number: US-JNJFOC-20160909424

PATIENT
  Age: 68 Year
  Sex: Female

DRUGS (1)
  1. REOPRO [Suspect]
     Active Substance: ABCIXIMAB
     Indication: MYOCARDIAL INFARCTION
     Route: 042
     Dates: start: 199602, end: 199602

REACTIONS (4)
  - Thrombocytopenia [Recovered/Resolved]
  - Blood pressure decreased [Recovered/Resolved]
  - Blood pH decreased [Unknown]
  - Catheter site haemorrhage [Recovered/Resolved]

NARRATIVE: CASE EVENT DATE: 199602
